FAERS Safety Report 15688997 (Version 1)
Quarter: 2018Q4

REPORT INFORMATION
  Report Type: Spontaneous
  Country: JP (occurrence: JP)
  Receive Date: 20181205
  Receipt Date: 20181205
  Transmission Date: 20190205
  Serious: Yes (Hospitalization, Other)
  Sender: FDA-Public Use
  Company Number: JP-MYLANLABS-2018M1089039

PATIENT
  Age: 66 Year
  Sex: Female

DRUGS (5)
  1. ETANERCEPT [Suspect]
     Active Substance: ETANERCEPT
     Indication: RHEUMATOID ARTHRITIS
     Dosage: FOR 4 YEARS
     Route: 058
  2. IGURATIMOD [Interacting]
     Active Substance: IGURATIMOD
     Route: 065
  3. PREDNISOLONE. [Suspect]
     Active Substance: PREDNISOLONE
     Indication: RHEUMATOID ARTHRITIS
     Dosage: FOR 8 YEARS
     Route: 065
  4. METHOTREXATE. [Interacting]
     Active Substance: METHOTREXATE
     Indication: RHEUMATOID ARTHRITIS
     Route: 065
  5. IGURATIMOD [Interacting]
     Active Substance: IGURATIMOD
     Indication: RHEUMATOID ARTHRITIS
     Dosage: DOSE INCREASED TO 50 MG/D
     Route: 065
     Dates: start: 201508

REACTIONS (2)
  - Drug interaction [Recovered/Resolved]
  - Pneumocystis jirovecii pneumonia [Recovered/Resolved]
